FAERS Safety Report 8989686 (Version 1)
Quarter: 2012Q4

REPORT INFORMATION
  Report Type: Report from Study
  Country: DE (occurrence: DE)
  Receive Date: 20121228
  Receipt Date: 20121228
  Transmission Date: 20130627
  Serious: Yes (Hospitalization)
  Sender: FDA-Public Use
  Company Number: DE-AMGEN-DEUCT2012083280

PATIENT
  Age: 75 Year
  Sex: Male

DRUGS (3)
  1. ETANERCEPT [Suspect]
     Indication: PRODUCT USED FOR UNKNOWN INDICATION
     Dosage: 50 mg, weekly
     Dates: end: 20120623
  2. ETANERCEPT [Suspect]
     Dosage: 50 mg, UNK
     Dates: start: 20120629
  3. METHOTREXATE SODIUM [Suspect]
     Dosage: 15 mg, weekly

REACTIONS (1)
  - Respiratory distress [Recovered/Resolved]
